FAERS Safety Report 16917891 (Version 1)
Quarter: 2019Q4

REPORT INFORMATION
  Report Type: Spontaneous
  Country: IT (occurrence: IT)
  Receive Date: 20191015
  Receipt Date: 20191015
  Transmission Date: 20200122
  Serious: Yes (Hospitalization, Other)
  Sender: FDA-Public Use
  Company Number: IT-ALKEM LABORATORIES LIMITED-IT-ALKEM-2019-04280

PATIENT
  Age: 27 Year
  Sex: Female

DRUGS (1)
  1. QUETIAPINE FUMARATE. [Suspect]
     Active Substance: QUETIAPINE FUMARATE
     Indication: SUICIDE ATTEMPT
     Dosage: 15 GRAM, 50 EXTENDED-RELEASE 300 MG TABLETS
     Route: 065

REACTIONS (5)
  - Sinus tachycardia [Recovering/Resolving]
  - Seizure [Recovering/Resolving]
  - Lactic acidosis [Recovering/Resolving]
  - Intentional overdose [Recovering/Resolving]
  - Mental status changes [Recovering/Resolving]
